FAERS Safety Report 21302154 (Version 1)
Quarter: 2022Q3

REPORT INFORMATION
  Report Type: Spontaneous
  Country: IT (occurrence: IT)
  Receive Date: 20220907
  Receipt Date: 20220907
  Transmission Date: 20221027
  Serious: Yes (Death)
  Sender: FDA-Public Use
  Company Number: IT-Atnahs Limited-ATNAHS20220907782

PATIENT
  Age: 41 Year
  Sex: Male

DRUGS (8)
  1. DIAZEPAM [Suspect]
     Active Substance: DIAZEPAM
     Indication: Drug abuse
  2. REMERON [Suspect]
     Active Substance: MIRTAZAPINE
     Indication: Drug abuse
  3. LORAZEPAM [Suspect]
     Active Substance: LORAZEPAM
     Indication: Drug abuse
  4. VALPROATE SODIUM [Suspect]
     Active Substance: VALPROATE SODIUM
     Indication: Drug abuse
  5. SEROQUEL [Suspect]
     Active Substance: QUETIAPINE FUMARATE
     Indication: Drug abuse
  6. TRIAZOLAM [Suspect]
     Active Substance: TRIAZOLAM
     Indication: Drug abuse
  7. IBUPROFEN [Concomitant]
     Active Substance: IBUPROFEN
     Indication: Product used for unknown indication
  8. BUTYLSCOPOLAMINE BROMIDE [Concomitant]
     Active Substance: BUTYLSCOPOLAMINE BROMIDE
     Indication: Drug abuse
     Dosage: SMOKED THE SCOPOLAMINE-BUTYLBROMIDE
     Route: 050

REACTIONS (3)
  - Depressed level of consciousness [Fatal]
  - Arrhythmia [Fatal]
  - Drug abuse [Fatal]
